FAERS Safety Report 16952216 (Version 3)
Quarter: 2020Q1

REPORT INFORMATION
  Report Type: Report from Study
  Country: US (occurrence: US)
  Receive Date: 20191023
  Receipt Date: 20200122
  Transmission Date: 20200409
  Serious: Yes (Hospitalization, Other)
  Sender: FDA-Public Use
  Company Number: US-GLAXOSMITHKLINE-2019-TSO02370-US

PATIENT
  Age: 69 Year
  Sex: Female

DRUGS (3)
  1. NIRAPARIB [Suspect]
     Active Substance: NIRAPARIB
     Indication: FALLOPIAN TUBE CANCER
     Dosage: 200 MG, QD
     Route: 048
     Dates: start: 20190624
  2. NIRAPARIB [Suspect]
     Active Substance: NIRAPARIB
     Dosage: 100 MG, QD
     Route: 048
  3. NIRAPARIB [Suspect]
     Active Substance: NIRAPARIB
     Dosage: 100 MG, QD
     Route: 048
     Dates: start: 20191024

REACTIONS (8)
  - Rash [Recovering/Resolving]
  - Dyspepsia [Unknown]
  - Hot flush [Unknown]
  - Musculoskeletal pain [Unknown]
  - Full blood count decreased [Unknown]
  - Adverse event [Unknown]
  - Red blood cell count decreased [Unknown]
  - Eructation [Unknown]

NARRATIVE: CASE EVENT DATE: 201908
